FAERS Safety Report 6454731-2 (Version None)
Quarter: 2009Q4

REPORT INFORMATION
  Report Type: 
  Country: None (occurrence: None)
  Receive Date: 20091118
  Receipt Date: 20091104
  Transmission Date: 20100525
  Serious: Yes (Death)
  Sender: FDA-Public Use
  Company Number: CIR-IE-339-09

PATIENT
  Sex: Female

DRUGS (1)
  1. CIRCADIN (MELATONIN) (MELATONIN) [Suspect]

REACTIONS (1)
  - DEATH [None]
